FAERS Safety Report 10273040 (Version 2)
Quarter: 2014Q3

REPORT INFORMATION
  Report Type: Report from Study
  Country: US (occurrence: US)
  Receive Date: 20140702
  Receipt Date: 20140702
  Transmission Date: 20150326
  Serious: Yes (Other)
  Sender: FDA-Public Use
  Company Number: US-SA-2014SA003077

PATIENT
  Age: 59 Year
  Sex: Female

DRUGS (1)
  1. AUBAGIO [Suspect]
     Active Substance: TERIFLUNOMIDE
     Indication: MULTIPLE SCLEROSIS
     Route: 048
     Dates: start: 20131119, end: 20140608

REACTIONS (10)
  - Blood pressure increased [Unknown]
  - Depressed mood [Unknown]
  - Deafness unilateral [Unknown]
  - Musculoskeletal stiffness [Unknown]
  - Asthenia [Unknown]
  - Vertigo [Not Recovered/Not Resolved]
  - Condition aggravated [Unknown]
  - Bladder disorder [Unknown]
  - Alopecia [Unknown]
  - Incontinence [Unknown]

NARRATIVE: CASE EVENT DATE: 2014
